FAERS Safety Report 5239581-7 (Version None)
Quarter: 2007Q1

REPORT INFORMATION
  Report Type: 
  Country: None (occurrence: None)
  Receive Date: 20070216
  Receipt Date: 20070205
  Transmission Date: 20070707
  Serious: Yes (Disabling)
  Sender: FDA-Public Use
  Company Number: 2006GB02387

PATIENT
  Age: 695 Month
  Sex: Female
  Weight: 24 kg

DRUGS (1)
  1. ARIMIDEX [Suspect]
     Indication: BREAST CANCER
     Route: 048
     Dates: start: 20060705

REACTIONS (2)
  - NAIL DISORDER [None]
  - TOOTH FRACTURE [None]
